FAERS Safety Report 6871908-2 (Version None)
Quarter: 2010Q3

REPORT INFORMATION
  Report Type: 
  Country: None (occurrence: None)
  Receive Date: 20100723
  Receipt Date: 20100715
  Transmission Date: 20110219
  Serious: Yes (Other)
  Sender: FDA-Public Use
  Company Number: US-PFIZER INC-2010089416

PATIENT
  Sex: Male
  Weight: 97.506 kg

DRUGS (6)
  1. LIPITOR [Suspect]
     Indication: BLOOD TRIGLYCERIDES INCREASED
     Dosage: 40 MG, DAILY
     Route: 048
  2. METFORMIN [Concomitant]
     Indication: DIABETES MELLITUS
     Dosage: 500 MG, 5X/DAY, THREE IN THE MORNING AND TWO AT NIGHT
  3. PLAVIX [Concomitant]
     Dosage: 75 MG, UNK
  4. TOPROL-XL [Concomitant]
     Dosage: 50 MG, DAILY
  5. ASCORBATE [Concomitant]
     Indication: DIABETES MELLITUS
     Dosage: UNK, DAILY
  6. EFFEXOR [Concomitant]
     Indication: DEPRESSION
     Dosage: 150 MG, UNK

REACTIONS (4)
  - BLOOD TRIGLYCERIDES INCREASED [None]
  - CARDIAC OPERATION [None]
  - NEUROPATHY PERIPHERAL [None]
  - SENSORY LOSS [None]
